FAERS Safety Report 18334553 (Version 2)
Quarter: 2020Q4

REPORT INFORMATION
  Report Type: Spontaneous
  Country: US (occurrence: US)
  Receive Date: 20201001
  Receipt Date: 20201117
  Transmission Date: 20210113
  Serious: Yes (Disabling, Other)
  Sender: FDA-Public Use
  Company Number: US-NOVAST LABORATORIES LTD.-2020NOV000309

PATIENT
  Age: 57 Year
  Sex: Female

DRUGS (3)
  1. NIFEDIPINE. [Suspect]
     Active Substance: NIFEDIPINE
     Indication: RAYNAUD^S PHENOMENON
     Dosage: UNK
     Route: 065
     Dates: start: 20191001, end: 20191101
  2. SUDAFED [Concomitant]
     Active Substance: PSEUDOEPHEDRINE HYDROCHLORIDE
     Indication: HYPERSENSITIVITY
     Dosage: 1 DOSAGE FORM, QD
     Route: 065
  3. NIFEDIPINE. [Suspect]
     Active Substance: NIFEDIPINE
     Dosage: TOOK ONE PILL
     Route: 065
     Dates: start: 201911, end: 201911

REACTIONS (13)
  - Rheumatoid arthritis [Not Recovered/Not Resolved]
  - Disability [Unknown]
  - Feeling abnormal [Not Recovered/Not Resolved]
  - Gait disturbance [Not Recovered/Not Resolved]
  - Product use in unapproved indication [Unknown]
  - Peripheral swelling [Not Recovered/Not Resolved]
  - Drug hypersensitivity [Not Recovered/Not Resolved]
  - Depression [Unknown]
  - Pain in extremity [Not Recovered/Not Resolved]
  - Sjogren^s syndrome [Not Recovered/Not Resolved]
  - Hypokinesia [Not Recovered/Not Resolved]
  - Burning sensation [Unknown]
  - Muscular weakness [Unknown]

NARRATIVE: CASE EVENT DATE: 201910
